FAERS Safety Report 4414779-6 (Version None)
Quarter: 2004Q3

REPORT INFORMATION
  Report Type: 
  Country: None (occurrence: None)
  Receive Date: 20040804
  Receipt Date: 20030922
  Transmission Date: 20050211
  Serious: No
  Sender: FDA-Public Use
  Company Number: US-BRISTOL-MYERS SQUIBB COMPANY-12389946

PATIENT
  Age: 52 Year
  Sex: Female

DRUGS (4)
  1. GLUCOVANCE [Suspect]
     Indication: DIABETES MELLITUS
     Dosage: DOSE REGIMEN:  1 TAB IN THE MORNING, 2 TABS IN THE EVENING
     Route: 048
     Dates: start: 20030901
  2. ATIVAN [Concomitant]
  3. LIPITOR [Concomitant]
  4. TOPROL-XL [Concomitant]

REACTIONS (2)
  - DYSPEPSIA [None]
  - HYPOGLYCAEMIA [None]
